FAERS Safety Report 4545214-5 (Version None)
Quarter: 2004Q4

REPORT INFORMATION
  Report Type: 
  Country: None (occurrence: None)
  Receive Date: 20041222
  Receipt Date: 20040806
  Transmission Date: 20050328
  Serious: Yes (Hospitalization, Other)
  Sender: FDA-Public Use
  Company Number: USA040874734

PATIENT
  Age: 54 Year
  Sex: Male
  Weight: 104 kg

DRUGS (1)
  1. HUMALOG [Suspect]
     Dates: start: 19990101

REACTIONS (8)
  - BLOOD CHOLESTEROL INCREASED [None]
  - BLOOD GLUCOSE INCREASED [None]
  - BLOOD PARATHYROID HORMONE DECREASED [None]
  - FEELING ABNORMAL [None]
  - HYPOGLYCAEMIA [None]
  - HYPOGLYCAEMIC SEIZURE [None]
  - THERAPEUTIC RESPONSE DELAYED [None]
  - TONGUE BITING [None]
